FAERS Safety Report 17801204 (Version 1)
Quarter: 2020Q2

REPORT INFORMATION
  Report Type: Spontaneous
  Country: US (occurrence: US)
  Receive Date: 20200519
  Receipt Date: 20200519
  Transmission Date: 20200714
  Serious: Yes (Hospitalization)
  Sender: FDA-Public Use
  Company Number: US-AUROBINDO-AUR-APL-2012-03873

PATIENT
  Age: 34 Year
  Sex: Male

DRUGS (29)
  1. FLUCONAZOLE TABLETS 100 MG [Suspect]
     Active Substance: FLUCONAZOLE
     Indication: CANDIDA INFECTION
     Dosage: 100 MG,DAILY,
     Route: 048
  2. FLUCONAZOLE TABLETS 100 MG [Interacting]
     Active Substance: FLUCONAZOLE
     Dosage: 800 MG,DAILY,
     Route: 048
  3. ALPRAZOLAM. [Concomitant]
     Active Substance: ALPRAZOLAM
     Dosage: .25 MG,AS NECESSARY,,AT BED TIME
     Route: 048
  4. ACETAMINOPHEN /HYDROCODONE [Concomitant]
     Active Substance: ACETAMINOPHEN\HYDROCODONE
     Dosage: UNK UNK,AS NECESSARY,,500/7.5MG, EVERY 4 HOURS
     Route: 048
  5. ACETAMINOPHEN. [Concomitant]
     Active Substance: ACETAMINOPHEN
     Indication: PRODUCT USED FOR UNKNOWN INDICATION
     Dosage: 650 MG,AS NECESSARY,,EVERY 4 H
     Route: 048
  6. LIDOCAINE. [Concomitant]
     Active Substance: LIDOCAINE
     Indication: PRODUCT USED FOR UNKNOWN INDICATION
     Dosage: 10 MILLILITER
     Route: 048
  7. FLUCONAZOLE TABLETS 100 MG [Interacting]
     Active Substance: FLUCONAZOLE
     Dosage: 200 MG,DAILY,
     Route: 048
  8. FILGRASTIM [Suspect]
     Active Substance: FILGRASTIM
     Indication: PRODUCT USED FOR UNKNOWN INDICATION
     Dosage: 300 PG,DAILY,
     Route: 058
  9. EMTRICITABINE/TENOFOVIR [Concomitant]
     Active Substance: EMTRICITABINE\TENOFOVIR
     Indication: PRODUCT USED FOR UNKNOWN INDICATION
     Dosage: UNK UNK,UNK,,200/300 MG DAILY
     Route: 048
  10. CHOLECALCIFEROL [Concomitant]
     Active Substance: CHOLECALCIFEROL
     Indication: PRODUCT USED FOR UNKNOWN INDICATION
     Dosage: 1000 IU,DAILY,
     Route: 048
  11. FILGRASTIM [Suspect]
     Active Substance: FILGRASTIM
     Dosage: UNK UNK,UNK,
     Route: 065
  12. MOXIFLOXACIN. [Concomitant]
     Active Substance: MOXIFLOXACIN
     Indication: PRODUCT USED FOR UNKNOWN INDICATION
     Dosage: 400 MG,DAILY,
     Route: 048
  13. VALGANCICLOVIR. [Concomitant]
     Active Substance: VALGANCICLOVIR
     Dosage: 900 MG,TWO TIMES A DAY,,FOR THREE WEEKS
     Route: 048
  14. LIDOCAINE VISCOUS [Concomitant]
     Active Substance: LIDOCAINE HYDROCHLORIDE
     Indication: PRODUCT USED FOR UNKNOWN INDICATION
     Dosage: 10 ML,5 TIMES A DAY,
     Route: 048
  15. FLUCONAZOLE TABLETS 100 MG [Interacting]
     Active Substance: FLUCONAZOLE
     Dosage: 400 MG,DAILY,
     Route: 048
  16. ATAZANAVIR. [Concomitant]
     Active Substance: ATAZANAVIR
     Indication: PRODUCT USED FOR UNKNOWN INDICATION
     Dosage: 300 MG,DAILY,
     Route: 048
  17. VALGANCICLOVIR. [Concomitant]
     Active Substance: VALGANCICLOVIR
     Indication: CYTOMEGALOVIRUS CHORIORETINITIS
     Dosage: 450 MG,TWO TIMES A DAY,
     Route: 048
  18. MORPHINE [Concomitant]
     Active Substance: MORPHINE
     Dosage: 10 MG,FOUR TIMES/DAY,
     Route: 048
  19. HYDROMORPHONE [Concomitant]
     Active Substance: HYDROMORPHONE
     Indication: PRODUCT USED FOR UNKNOWN INDICATION
     Dosage: 1 MG,AS NECESSARY,,EVERY 4 HOURS
     Route: 042
  20. SODIUM CHLORIDE. [Concomitant]
     Active Substance: SODIUM CHLORIDE
     Indication: PRODUCT USED FOR UNKNOWN INDICATION
     Dosage: 100 ML,EVERY HOUR,
     Route: 042
  21. RITONAVIR. [Concomitant]
     Active Substance: RITONAVIR
     Indication: PRODUCT USED FOR UNKNOWN INDICATION
     Dosage: 100 MG,DAILY,
     Route: 048
  22. ETHAMBUTOL [Concomitant]
     Active Substance: ETHAMBUTOL HYDROCHLORIDE
     Indication: PRODUCT USED FOR UNKNOWN INDICATION
     Dosage: 400 MG,TWO TIMES A DAY,
     Route: 048
  23. AZITHROMYCIN ANHYDROUS. [Concomitant]
     Active Substance: AZITHROMYCIN ANHYDROUS
     Indication: PRODUCT USED FOR UNKNOWN INDICATION
     Dosage: 500 MG,DAILY,
     Route: 048
  24. ACETAMINOPHEN /HYDROCODONE [Concomitant]
     Active Substance: ACETAMINOPHEN\HYDROCODONE
     Indication: PAIN
     Dosage: UNK UNK,AS NECESSARY,,500/7.5 MG, TWICE DAILY
     Route: 048
  25. FLUCONAZOLE TABLETS 100 MG [Interacting]
     Active Substance: FLUCONAZOLE
     Dosage: 200 MG,DAILY,
     Route: 042
  26. RIFABUTIN. [Interacting]
     Active Substance: RIFABUTIN
     Indication: DISSEMINATED MYCOBACTERIUM AVIUM COMPLEX INFECTION
     Dosage: 150 MG,UNK,,MONDAY, WEDNESDAY AND FRIDAY
     Route: 048
  27. FAMOTIDINE. [Suspect]
     Active Substance: FAMOTIDINE
     Indication: PRODUCT USED FOR UNKNOWN INDICATION
     Dosage: 20 MG,TWO TIMES A DAY,
     Route: 048
  28. ALPRAZOLAM. [Concomitant]
     Active Substance: ALPRAZOLAM
     Indication: PRODUCT USED FOR UNKNOWN INDICATION
     Dosage: .25 MG,UNK,,AT BED TIME
     Route: 048
  29. MORPHINE [Concomitant]
     Active Substance: MORPHINE
     Indication: PRODUCT USED FOR UNKNOWN INDICATION
     Dosage: 2 MG,AS NECESSARY,,EVERY 4 H
     Route: 042

REACTIONS (17)
  - Food intolerance [Recovering/Resolving]
  - Deep vein thrombosis [Recovering/Resolving]
  - Thrombocytopenia [Recovered/Resolved]
  - Drug interaction [Recovered/Resolved]
  - Anaemia [Unknown]
  - Leukopenia [Recovering/Resolving]
  - Discomfort [Recovering/Resolving]
  - Iron deficiency anaemia [Recovering/Resolving]
  - Hiatus hernia [Recovering/Resolving]
  - Chest pain [Recovering/Resolving]
  - Oesophagitis [Unknown]
  - Pyrexia [Recovering/Resolving]
  - Odynophagia [Recovering/Resolving]
  - Weight decreased [Recovering/Resolving]
  - Dysphagia [Recovering/Resolving]
  - Vomiting [Recovering/Resolving]
  - Nausea [Recovering/Resolving]
